FAERS Safety Report 10272823 (Version 1)
Quarter: 2014Q3

REPORT INFORMATION
  Report Type: Spontaneous
  Country: US (occurrence: US)
  Receive Date: 20140702
  Receipt Date: 20140702
  Transmission Date: 20150326
  Serious: Yes (Death)
  Sender: FDA-Public Use
  Company Number: US-JNJFOC-20140618880

PATIENT
  Age: 59 Year
  Sex: Male

DRUGS (1)
  1. SYLVANT [Suspect]
     Active Substance: SILTUXIMAB
     Indication: CASTLEMAN^S DISEASE
     Route: 042
     Dates: start: 201406

REACTIONS (3)
  - Asthenia [Unknown]
  - Drug ineffective [Unknown]
  - Death [Fatal]

NARRATIVE: CASE EVENT DATE: 201406
